FAERS Safety Report 6875815-0 (Version None)
Quarter: 2010Q3

REPORT INFORMATION
  Report Type: 
  Country: None (occurrence: None)
  Receive Date: 20100727
  Receipt Date: 20100719
  Transmission Date: 20110219
  Serious: Yes (Disabling, Other)
  Sender: FDA-Public Use
  Company Number: CA-ASTRAZENECA-2010SE33892

PATIENT
  Age: 55 Year
  Sex: Male
  Weight: 81.6 kg

DRUGS (3)
  1. NEXIUM [Suspect]
     Route: 048
  2. ADVAIR DISKUS 100/50 [Concomitant]
     Route: 055
  3. LUMIGAN [Concomitant]
     Route: 047

REACTIONS (1)
  - BREAST SWELLING [None]
